FAERS Safety Report 8447514-5 (Version None)
Quarter: 2012Q2

REPORT INFORMATION
  Report Type: 
  Country: None (occurrence: None)
  Receive Date: 20120619
  Receipt Date: 20120607
  Transmission Date: 20120825
  Serious: Yes (Hospitalization, Other)
  Sender: FDA-Public Use
  Company Number: US-ELI_LILLY_AND_COMPANY-US201103003537

PATIENT
  Sex: Female

DRUGS (19)
  1. LOVAZA [Concomitant]
     Dosage: UNK, UNKNOWN
  2. LISINOPRIL [Concomitant]
     Dosage: UNK, UNKNOWN
  3. PERCOCET [Concomitant]
     Dosage: UNK, UNKNOWN
  4. ALENDRONATE SODIUM [Concomitant]
     Dosage: UNK, UNKNOWN
  5. FORTEO [Suspect]
     Dosage: 20 UG, QD
     Dates: start: 20101101
  6. ENBREL [Concomitant]
     Dosage: UNK, UNKNOWN
  7. FLUOXETINE [Concomitant]
     Dosage: UNK, UNKNOWN
  8. FORTEO [Suspect]
     Indication: OSTEOPOROSIS
     Dosage: 20 UG, DAILY (1/D)
     Dates: start: 20101101
  9. CALCITRAL [Concomitant]
     Dosage: UNK, UNKNOWN
  10. PREDNISONE [Concomitant]
     Dosage: UNK, UNKNOWN
  11. SODIUM BICARBONATE [Concomitant]
     Dosage: UNK, UNKNOWN
  12. LEVOTHROID [Concomitant]
     Dosage: UNK, UNKNOWN
  13. PRAVASTATIN [Concomitant]
     Dosage: UNK, UNKNOWN
  14. FORTEO [Suspect]
     Dosage: 20 UG, QD
     Dates: start: 20101101
  15. FENTANYL [Concomitant]
     Dosage: UNK, UNKNOWN
  16. LANTUS [Concomitant]
     Dosage: UNK, UNKNOWN
  17. NOVOLOG [Concomitant]
     Dosage: UNK, UNKNOWN
  18. OMEPRAZOLE [Concomitant]
     Dosage: UNK, UNKNOWN
  19. FUROSEMIDE [Concomitant]
     Dosage: UNK, UNKNOWN

REACTIONS (5)
  - PNEUMONIA [None]
  - FALL [None]
  - URINARY TRACT INFECTION [None]
  - HIP FRACTURE [None]
  - RECTAL CANCER [None]
